FAERS Safety Report 23096165 (Version 5)
Quarter: 2023Q4

REPORT INFORMATION
  Report Type: Spontaneous
  Country: JP (occurrence: None)
  Receive Date: 20231023
  Receipt Date: 20231113
  Transmission Date: 20240110
  Serious: Yes (Life-Threatening, Disabling, Other)
  Sender: FDA-Public Use
  Company Number: 2023A233518

PATIENT
  Age: 88 Year
  Sex: Female
  Weight: 40 kg

DRUGS (12)
  1. ONDEXXYA [Suspect]
     Active Substance: ANDEXANET ALFA
     Indication: Subarachnoid haemorrhage
     Dosage: METHOD A: INTRAVENOUS DOSING OF 400 MG AT 30 MG/MIN FOLLOWED BY 480 MG AT 4 MG/MIN IN 2 HRS880.0M...
     Route: 042
     Dates: start: 20231008, end: 20231008
  2. XARELTO [Concomitant]
     Active Substance: RIVAROXABAN
     Indication: Atrial fibrillation
     Dosage: MORNING
     Route: 048
  3. ADONA [Concomitant]
     Indication: Subarachnoid haemorrhage
     Route: 041
     Dates: start: 20231008, end: 20231010
  4. TRANSAMIN [Concomitant]
     Active Substance: TRANEXAMIC ACID
     Indication: Subarachnoid haemorrhage
     Route: 041
     Dates: start: 20231008, end: 20231010
  5. FAMOTIDINE [Concomitant]
     Active Substance: FAMOTIDINE
     Indication: Subarachnoid haemorrhage
     Route: 042
     Dates: start: 20231008, end: 20231010
  6. VIMPAT [Concomitant]
     Active Substance: LACOSAMIDE
     Indication: Epilepsy
     Route: 042
     Dates: start: 20231008, end: 20231011
  7. CEFAZOLIN SODIUM [Concomitant]
     Active Substance: CEFAZOLIN SODIUM
     Indication: Infection prophylaxis
     Route: 042
     Dates: start: 20231008, end: 20231010
  8. DIPRIVAN [Concomitant]
     Active Substance: ISOPROPYL ALCOHOL\PROPOFOL
     Indication: General anaesthesia
     Route: 042
     Dates: start: 20231008, end: 20231008
  9. ROCURONIUM BROMIDE [Concomitant]
     Active Substance: ROCURONIUM BROMIDE
     Indication: General anaesthesia
     Route: 042
     Dates: start: 20231008, end: 20231008
  10. FENTANYL [Concomitant]
     Active Substance: FENTANYL\FENTANYL CITRATE
     Indication: General anaesthesia
     Route: 042
     Dates: start: 20231008, end: 20231008
  11. NICARDIPINE HYDROCHLORIDE [Concomitant]
     Active Substance: NICARDIPINE HYDROCHLORIDE
     Indication: Subarachnoid haemorrhage
     Route: 042
     Dates: start: 20231008, end: 20231010
  12. MEYLON [Concomitant]
     Active Substance: SODIUM BICARBONATE
     Indication: Hyperlactacidaemia
     Route: 042
     Dates: start: 20231008, end: 20231008

REACTIONS (9)
  - Acute kidney injury [Recovered/Resolved]
  - Thrombocytopenia [Recovered/Resolved]
  - Sepsis [Unknown]
  - Pleural effusion [Recovering/Resolving]
  - Ascites [Not Recovered/Not Resolved]
  - Abdominal infection [Recovering/Resolving]
  - Altered state of consciousness [Unknown]
  - Wrong technique in product usage process [Unknown]
  - Hyperlactacidaemia [Recovered/Resolved]

NARRATIVE: CASE EVENT DATE: 20231001
